FAERS Safety Report 16984683 (Version 1)
Quarter: 2019Q4

REPORT INFORMATION
  Report Type: Spontaneous
  Country: US (occurrence: US)
  Receive Date: 20191101
  Receipt Date: 20191101
  Transmission Date: 20200122
  Serious: Yes (Hospitalization)
  Sender: FDA-Public Use
  Company Number: US-BIOMARINAP-US-2019-125167

PATIENT
  Age: 4 Year
  Sex: Male
  Weight: 14.4 kg

DRUGS (1)
  1. BRINEURA [Suspect]
     Active Substance: CERLIPONASE ALFA
     Indication: NEURONAL CEROID LIPOFUSCINOSIS
     Dosage: UNK UNK, QOW
     Route: 020

REACTIONS (2)
  - Effusion [Recovered/Resolved]
  - Cerebrospinal fluid leakage [Recovered/Resolved]

NARRATIVE: CASE EVENT DATE: 20190224
